FAERS Safety Report 18498209 (Version 3)
Quarter: 2020Q4

REPORT INFORMATION
  Report Type: Spontaneous
  Country: AU (occurrence: AU)
  Receive Date: 20201112
  Receipt Date: 20201123
  Transmission Date: 20210114
  Serious: Yes (Hospitalization, Other)
  Sender: FDA-Public Use
  Company Number: AU-BAYER-2020-241261

PATIENT
  Age: 45 Year
  Sex: Female
  Weight: 135 kg

DRUGS (1)
  1. MIRENA [Suspect]
     Active Substance: LEVONORGESTREL
     Indication: MENORRHAGIA
     Dosage: 20 ?G PER DAY CONTINUOUSLY
     Route: 015
     Dates: start: 20140325, end: 20201015

REACTIONS (8)
  - Device use issue [Recovered/Resolved]
  - Device issue [None]
  - Device difficult to use [None]
  - Complication of device removal [None]
  - Device breakage [None]
  - Embedded device [Not Recovered/Not Resolved]
  - Abdominal pain [Not Recovered/Not Resolved]
  - Device malfunction [None]

NARRATIVE: CASE EVENT DATE: 20190325
